FAERS Safety Report 6227191-4 (Version None)
Quarter: 2009Q2

REPORT INFORMATION
  Report Type: 
  Country: None (occurrence: None)
  Receive Date: 20090612
  Receipt Date: 20090602
  Transmission Date: 20091009
  Serious: Yes (Hospitalization)
  Sender: FDA-Public Use
  Company Number: FR-ELI_LILLY_AND_COMPANY-FR200906000659

PATIENT
  Sex: Male
  Weight: 75 kg

DRUGS (5)
  1. SOMATROPIN [Suspect]
     Indication: GROWTH HORMONE DEFICIENCY
     Dosage: 0.2 MG, DAILY (1/D)
     Dates: start: 20030101, end: 20071114
  2. CIALIS [Concomitant]
     Indication: SEXUAL DYSFUNCTION
     Dosage: 20 MG, DAILY (1/D)
  3. ANDROTARDYL [Concomitant]
     Indication: GONADOTROPHIN DEFICIENCY
     Dosage: 12 NG, DAILY (1/D)
     Dates: start: 19980701
  4. LEVOTHYROX [Concomitant]
     Dosage: 100 UG, DAILY (1/D)
     Dates: start: 19980901
  5. TAHOR [Concomitant]
     Indication: DYSLIPIDAEMIA
     Dosage: 10 MG, DAILY (1/D)
     Dates: start: 20040710

REACTIONS (2)
  - PITUITARY TUMOUR BENIGN [None]
  - SURGERY [None]
